FAERS Safety Report 7513015-1 (Version None)
Quarter: 2011Q2

REPORT INFORMATION
  Report Type: 
  Country: None (occurrence: None)
  Receive Date: 20110525
  Receipt Date: 20110525
  Transmission Date: 20111010
  Serious: Yes (Life-Threatening, Hospitalization)
  Sender: FDA-Public Use
  Company Number: None

PATIENT
  Sex: Male
  Weight: 108 kg

DRUGS (2)
  1. DAPSONE [Suspect]
     Indication: PSORIATIC ARTHROPATHY
     Dosage: 100 MG DAILY PO
     Route: 048
     Dates: start: 20110110, end: 20110520
  2. DAPSONE [Suspect]
     Indication: PYODERMA
     Dosage: 100 MG DAILY PO
     Route: 048
     Dates: start: 20110110, end: 20110520

REACTIONS (6)
  - BRONCHITIS [None]
  - AGRANULOCYTOSIS [None]
  - UPPER RESPIRATORY TRACT INFECTION [None]
  - ORAL CANDIDIASIS [None]
  - OROPHARYNGEAL PAIN [None]
  - FEBRILE NEUTROPENIA [None]
